FAERS Safety Report 5157608-8 (Version None)
Quarter: 2006Q4

REPORT INFORMATION
  Report Type: 
  Country: None (occurrence: None)
  Receive Date: 20061127
  Receipt Date: 20061115
  Transmission Date: 20070319
  Serious: Yes (Life-Threatening, Other)
  Sender: FDA-Public Use
  Company Number: PL-MERCK-0611POL00005

PATIENT
  Age: 46 Year
  Sex: Female
  Weight: 46 kg

DRUGS (5)
  1. SINGULAIR [Suspect]
     Indication: MIGRAINE
     Route: 048
     Dates: start: 20060101, end: 20060101
  2. SINGULAIR [Suspect]
     Route: 048
     Dates: start: 20060904, end: 20061020
  3. SINGULAIR [Suspect]
     Indication: HYPERSENSITIVITY
     Route: 048
     Dates: start: 20060101, end: 20060101
  4. SINGULAIR [Suspect]
     Route: 048
     Dates: start: 20060904, end: 20061020
  5. TRIMETAZIDINE HYDROCHLORIDE [Concomitant]
     Route: 065
     Dates: start: 20030919

REACTIONS (3)
  - ATRIAL FLUTTER [None]
  - INCORRECT DOSE ADMINISTERED [None]
  - OFF LABEL USE [None]
